FAERS Safety Report 13715343 (Version 1)
Quarter: 2017Q3

REPORT INFORMATION
  Report Type: Spontaneous
  Country: CH (occurrence: CH)
  Receive Date: 20170704
  Receipt Date: 20170704
  Transmission Date: 20171127
  Serious: Yes (Hospitalization)
  Sender: FDA-Public Use
  Company Number: CH-TEVA-781604ISR

PATIENT
  Age: 70 Year
  Sex: Male

DRUGS (7)
  1. CEDUR [Interacting]
     Active Substance: BEZAFIBRATE
     Route: 048
     Dates: start: 201608, end: 20170514
  2. TAVANIC [Interacting]
     Active Substance: LEVOFLOXACIN
     Route: 048
     Dates: start: 201705, end: 20170508
  3. CEFEPIM SANDOZ [Interacting]
     Active Substance: CEFEPIME HYDROCHLORIDE
     Indication: CHOLECYSTITIS
     Route: 041
     Dates: start: 20170515, end: 20170515
  4. AMIKIN [Interacting]
     Active Substance: AMIKACIN SULFATE
     Indication: CHOLECYSTITIS
     Route: 041
     Dates: start: 20170515, end: 20170515
  5. ALLOPUR 100 MG TABLETTEN [Suspect]
     Active Substance: ALLOPURINOL SODIUM
     Indication: HYPERURICAEMIA
     Route: 048
     Dates: start: 20170316, end: 20170514
  6. IMUREK 50 MG, FILMTABLETTEN [Interacting]
     Active Substance: AZATHIOPRINE
     Indication: MYASTHENIA GRAVIS
     Route: 048
     Dates: start: 201608, end: 20170514
  7. CO-AMOXI [Interacting]
     Active Substance: AMOXICILLIN\CLAVULANATE POTASSIUM
     Route: 048
     Dates: start: 201705, end: 20170508

REACTIONS (5)
  - Pancytopenia [Recovering/Resolving]
  - Inhibitory drug interaction [Recovering/Resolving]
  - Rash generalised [Recovered/Resolved]
  - Rash morbilliform [Unknown]
  - Rhinovirus infection [Unknown]

NARRATIVE: CASE EVENT DATE: 201705
